FAERS Safety Report 15933473 (Version 2)
Quarter: 2019Q1

REPORT INFORMATION
  Report Type: Spontaneous
  Country: US (occurrence: US)
  Receive Date: 20190207
  Receipt Date: 20190225
  Transmission Date: 20190417
  Serious: Yes (Hospitalization)
  Sender: FDA-Public Use
  Company Number: US-CELGENEUS-USA-20190200436

PATIENT
  Age: 81 Year
  Sex: Female

DRUGS (7)
  1. STEROIDS [Concomitant]
     Active Substance: UNSPECIFIED INGREDIENT
     Indication: SUPPORTIVE CARE
     Route: 065
     Dates: start: 20190129, end: 20190204
  2. REVLIMID [Suspect]
     Active Substance: LENALIDOMIDE
     Dosage: 10 MILLIGRAM
     Route: 048
     Dates: start: 201803, end: 20190124
  3. ZOSYN [Concomitant]
     Active Substance: PIPERACILLIN SODIUM\TAZOBACTAM SODIUM
     Indication: PRODUCT USED FOR UNKNOWN INDICATION
     Dosage: 10.125 GRAM
     Route: 041
     Dates: start: 20190128, end: 20190130
  4. NEBULIZER [Concomitant]
     Active Substance: DEVICE
     Indication: SUPPORTIVE CARE
     Route: 065
  5. ROCEPHIN [Concomitant]
     Active Substance: CEFTRIAXONE SODIUM
     Indication: PRODUCT USED FOR UNKNOWN INDICATION
     Dosage: 2 MILLIGRAM
     Route: 041
     Dates: start: 20190128, end: 20190128
  6. VANOMYCIN [Concomitant]
     Indication: RESPIRATORY SYNCYTIAL VIRUS INFECTION
     Dosage: 1.5 GRAM
     Route: 041
     Dates: start: 20190129, end: 20190129
  7. REVLIMID [Suspect]
     Active Substance: LENALIDOMIDE
     Indication: PLASMA CELL MYELOMA
     Dosage: 15 MILLIGRAM
     Route: 048
     Dates: start: 20180206

REACTIONS (2)
  - Respiratory syncytial virus infection [Recovering/Resolving]
  - Pancytopenia [Recovered/Resolved]

NARRATIVE: CASE EVENT DATE: 20190128
